FAERS Safety Report 21655626 (Version 1)
Quarter: 2022Q4

REPORT INFORMATION
  Report Type: Spontaneous
  Country: AU (occurrence: AU)
  Receive Date: 20221129
  Receipt Date: 20221129
  Transmission Date: 20230113
  Serious: Yes (Other)
  Sender: FDA-Public Use
  Company Number: AU-ALKEM LABORATORIES LIMITED-AU-ALKEM-2021-08094

PATIENT
  Age: 32 Year
  Sex: Female

DRUGS (3)
  1. OLANZAPINE [Suspect]
     Active Substance: OLANZAPINE
     Indication: Product used for unknown indication
     Dosage: UNK
     Route: 065
  2. DROPERIDOL [Suspect]
     Active Substance: DROPERIDOL
     Indication: Product used for unknown indication
     Dosage: UNK
     Route: 065
  3. MIDAZOLAM [Suspect]
     Active Substance: MIDAZOLAM
     Indication: Product used for unknown indication
     Dosage: UNK
     Route: 065

REACTIONS (7)
  - Oculogyric crisis [Unknown]
  - Aggression [Unknown]
  - Agitation [Unknown]
  - Blood lactic acid increased [Unknown]
  - Body temperature increased [Unknown]
  - Hypertonia [Unknown]
  - Tachycardia [Unknown]
